FAERS Safety Report 9005471 (Version 1)
Quarter: 2013Q1

REPORT INFORMATION
  Report Type: Spontaneous
  Country: US (occurrence: US)
  Receive Date: 20130109
  Receipt Date: 20130109
  Transmission Date: 20140127
  Serious: Yes (Death)
  Sender: FDA-Public Use
  Company Number: US-PFIZER INC-2013007439

PATIENT
  Age: 44 Year
  Sex: Female

DRUGS (7)
  1. ONDANSETRON [Suspect]
     Route: 048
  2. PAROXETINE [Suspect]
     Route: 048
  3. TRAMADOL [Suspect]
     Route: 048
  4. LAMOTRIGINE [Suspect]
     Route: 048
  5. DIFLUNISAL [Suspect]
     Route: 048
  6. CLONAZEPAM [Suspect]
     Route: 048
  7. LORAZEPAM [Suspect]
     Route: 048

REACTIONS (3)
  - Completed suicide [Fatal]
  - Cardiac arrest [Fatal]
  - Respiratory arrest [Fatal]
